FAERS Safety Report 6834180-5 (Version None)
Quarter: 2010Q3

REPORT INFORMATION
  Report Type: 
  Country: None (occurrence: None)
  Receive Date: 20100712
  Receipt Date: 20070413
  Transmission Date: 20110219
  Serious: No
  Sender: FDA-Public Use
  Company Number: US-PFIZER INC-2007030806

PATIENT
  Sex: Female
  Weight: 120.9 kg

DRUGS (6)
  1. CHANTIX [Suspect]
     Indication: SMOKING CESSATION THERAPY
     Dates: start: 20070407
  2. METFORMIN HYDROCHLORIDE [Concomitant]
  3. SERETIDE MITE [Concomitant]
  4. DULOXETINE HYDROCHLORIDE [Concomitant]
  5. SYNTHROID [Concomitant]
  6. ANTIHYPERTENSIVES [Concomitant]

REACTIONS (2)
  - ANGER [None]
  - TOBACCO USER [None]
